FAERS Safety Report 9305401 (Version 4)
Quarter: 2013Q3

REPORT INFORMATION
  Report Type: Report from Study
  Country: FR (occurrence: FR)
  Receive Date: 20130523
  Receipt Date: 20130716
  Transmission Date: 20140515
  Serious: Yes (Life-Threatening, Hospitalization)
  Sender: FDA-Public Use
  Company Number: FR-BRISTOL-MYERS SQUIBB COMPANY-18909374

PATIENT
  Age: 36 Year
  Sex: Male

DRUGS (4)
  1. IPILIMUMAB [Suspect]
     Indication: MALIGNANT MELANOMA
     Dosage: FOURTH PERFUSION:23APR13 (INITIATION PHASE), 10 MG/KG.?730 MG IN TOTAL
     Route: 042
  2. KEPPRA [Concomitant]
     Indication: EPILEPSY
     Dosage: 1 DF-1500 (UNIT NOS) X 2.
     Route: 048
     Dates: start: 2011
  3. SEROPLEX [Concomitant]
     Indication: DEPRESSION
     Route: 048
     Dates: start: 201209
  4. XANAX [Concomitant]
     Indication: ANXIETY
     Route: 048
     Dates: start: 20130408

REACTIONS (4)
  - Hepatitis [Not Recovered/Not Resolved]
  - Abdominal pain [Not Recovered/Not Resolved]
  - General physical health deterioration [Not Recovered/Not Resolved]
  - Vomiting [Not Recovered/Not Resolved]
